FAERS Safety Report 14820687 (Version 2)
Quarter: 2018Q2

REPORT INFORMATION
  Report Type: Spontaneous
  Country: CA (occurrence: CA)
  Receive Date: 20180427
  Receipt Date: 20180615
  Transmission Date: 20180711
  Serious: Yes (Other)
  Sender: FDA-Public Use
  Company Number: CA-CELLTRION INC.-2017CA002961

PATIENT

DRUGS (12)
  1. INFLECTRA [Suspect]
     Active Substance: INFLIXIMAB-DYYB
     Dosage: 525 MG, 0,2,6 WEEKS  AND THEN EVERY 6 WEEKS)
     Route: 042
     Dates: start: 20161215
  2. INFLECTRA [Suspect]
     Active Substance: INFLIXIMAB-DYYB
     Indication: RHEUMATOID ARTHRITIS
     Dosage: 330 MG, THEN EVERY 6 WEEKS FOR 6 MONTHS
     Route: 042
     Dates: start: 20161215
  3. INFLECTRA [Suspect]
     Active Substance: INFLIXIMAB-DYYB
     Dosage: 525 MG, UNK
     Route: 042
     Dates: start: 20180412
  4. INFLECTRA [Suspect]
     Active Substance: INFLIXIMAB-DYYB
     Dosage: 525 MG, UNK
     Route: 042
     Dates: start: 20180607
  5. INFLECTRA [Suspect]
     Active Substance: INFLIXIMAB-DYYB
     Dosage: UNK
     Route: 065
     Dates: start: 20180103
  6. METHOTREXATE. [Concomitant]
     Active Substance: METHOTREXATE
     Indication: RHEUMATOID ARTHRITIS
     Dosage: 12.5 MG, ON SATURDAY AND SUNDAY OF EACH WEEK
     Dates: start: 201507
  7. INFLECTRA [Suspect]
     Active Substance: INFLIXIMAB-DYYB
     Dosage: 550 MG, (EVERY 6 WEEKS)
     Route: 042
     Dates: start: 20170502
  8. INFLECTRA [Suspect]
     Active Substance: INFLIXIMAB-DYYB
     Dosage: 525 MG Q6 WEEKS
     Route: 042
     Dates: start: 20180214
  9. INFLECTRA [Suspect]
     Active Substance: INFLIXIMAB-DYYB
     Dosage: 550 MG,  (EVERY 6 WEEKS)
     Route: 042
     Dates: start: 20170824
  10. INFLECTRA [Suspect]
     Active Substance: INFLIXIMAB-DYYB
     Dosage: 525 MG, EVERY 6 WEEKS
     Route: 042
     Dates: start: 20180214
  11. CYMBALTA [Concomitant]
     Active Substance: DULOXETINE HYDROCHLORIDE
     Dosage: 60 MG, DAILY
     Dates: start: 201503
  12. VALTREX [Concomitant]
     Active Substance: VALACYCLOVIR HYDROCHLORIDE
     Dosage: 500 MG, DAILY

REACTIONS (11)
  - Injection site extravasation [Recovering/Resolving]
  - Weight decreased [Unknown]
  - Weight increased [Unknown]
  - Drug ineffective [Unknown]
  - Inappropriate schedule of drug administration [Unknown]
  - Injection site pain [Recovering/Resolving]
  - Injection site mass [Recovering/Resolving]
  - Upper respiratory tract infection [Not Recovered/Not Resolved]
  - Sinusitis [Recovered/Resolved]
  - Injection site oedema [Recovering/Resolving]
  - Product use issue [Unknown]

NARRATIVE: CASE EVENT DATE: 20161215
